FAERS Safety Report 14292437 (Version 2)
Quarter: 2017Q4

REPORT INFORMATION
  Report Type: Spontaneous
  Country: FR (occurrence: FR)
  Receive Date: 20171215
  Receipt Date: 20171231
  Transmission Date: 20180321
  Serious: Yes (Life-Threatening, Hospitalization, Other)
  Sender: FDA-Public Use
  Company Number: FR-ASTRAZENECA-2017SF27732

PATIENT
  Age: 19457 Day
  Sex: Male

DRUGS (11)
  1. ABILIFY [Interacting]
     Active Substance: ARIPIPRAZOLE
     Indication: DELUSION
     Route: 048
     Dates: start: 20160211
  2. ABILIFY [Interacting]
     Active Substance: ARIPIPRAZOLE
     Indication: DELUSION
     Route: 048
  3. ABILIFY [Interacting]
     Active Substance: ARIPIPRAZOLE
     Indication: DELUSION
     Route: 048
     Dates: start: 20160331, end: 20160423
  4. XEROQUEL [Interacting]
     Active Substance: QUETIAPINE FUMARATE
     Indication: DELUSION
     Route: 048
     Dates: end: 20160211
  5. CLOZAPINE. [Interacting]
     Active Substance: CLOZAPINE
     Indication: DELUSION
     Route: 048
     Dates: start: 20151230, end: 20160423
  6. XEROQUEL [Suspect]
     Active Substance: QUETIAPINE FUMARATE
     Indication: SCHIZOPHRENIA
     Route: 048
     Dates: start: 20151230
  7. XEROQUEL [Interacting]
     Active Substance: QUETIAPINE FUMARATE
     Indication: DELUSION
     Route: 048
     Dates: start: 20151230
  8. XEROQUEL [Interacting]
     Active Substance: QUETIAPINE FUMARATE
     Indication: SCHIZOPHRENIA
     Route: 048
     Dates: end: 20160211
  9. XEROQUEL [Interacting]
     Active Substance: QUETIAPINE FUMARATE
     Indication: SCHIZOPHRENIA
     Route: 048
     Dates: end: 20160423
  10. XEROQUEL [Interacting]
     Active Substance: QUETIAPINE FUMARATE
     Indication: DELUSION
     Route: 048
     Dates: end: 20160423
  11. CLOZAPINE. [Interacting]
     Active Substance: CLOZAPINE
     Indication: DELUSION
     Route: 048
     Dates: start: 20151230, end: 20160423

REACTIONS (19)
  - Delirium [Recovered/Resolved]
  - Condition aggravated [Recovered/Resolved]
  - Off label use [Unknown]
  - Hyperthermia [Recovered/Resolved]
  - Blood creatine phosphokinase increased [Recovered/Resolved]
  - Hyperleukocytosis [Unknown]
  - Psychiatric decompensation [Recovered/Resolved]
  - Acute kidney injury [Unknown]
  - Neurological decompensation [Unknown]
  - Extrapyramidal disorder [Recovered/Resolved]
  - Drug interaction [Unknown]
  - Catatonia [Recovered/Resolved]
  - Psychomotor retardation [Recovered/Resolved]
  - Respiratory failure [Unknown]
  - Pneumonia aspiration [Not Recovered/Not Resolved]
  - Overdose [Unknown]
  - Septic shock [Unknown]
  - Salivary hypersecretion [Recovered/Resolved]
  - Neuroleptic malignant syndrome [Recovered/Resolved]

NARRATIVE: CASE EVENT DATE: 20160423
